FAERS Safety Report 15705031 (Version 1)
Quarter: 2018Q4

REPORT INFORMATION
  Report Type: Spontaneous
  Country: US (occurrence: US)
  Receive Date: 20181210
  Receipt Date: 20181210
  Transmission Date: 20190205
  Serious: No
  Sender: FDA-Public Use
  Company Number: US-SA-2018SA334642

PATIENT
  Age: 54 Year
  Sex: Male

DRUGS (2)
  1. TOUJEO [Suspect]
     Active Substance: INSULIN GLARGINE
     Indication: TYPE 2 DIABETES MELLITUS
     Dosage: 150 IU, BID
     Route: 058
  2. APIDRA [Suspect]
     Active Substance: INSULIN GLULISINE
     Indication: TYPE 2 DIABETES MELLITUS
     Dosage: 50-60 UNITS
     Route: 058

REACTIONS (3)
  - Lymphoedema [Unknown]
  - Intentional product misuse [Unknown]
  - Inappropriate schedule of product administration [Unknown]
